FAERS Safety Report 23749338 (Version 1)
Quarter: 2024Q2

REPORT INFORMATION
  Report Type: Report from Study
  Country: US (occurrence: US)
  Receive Date: 20240416
  Receipt Date: 20240416
  Transmission Date: 20240716
  Serious: No
  Sender: FDA-Public Use
  Company Number: US-ALXN-202404USA000637US

PATIENT
  Sex: Female

DRUGS (1)
  1. STRENSIQ [Suspect]
     Active Substance: ASFOTASE ALFA
     Indication: Product used for unknown indication
     Dosage: UNK
     Route: 065

REACTIONS (7)
  - Discomfort [Unknown]
  - Wrist fracture [Unknown]
  - Pain [Unknown]
  - Fatigue [Unknown]
  - Injection site mass [Unknown]
  - Injection site bruising [Unknown]
  - Fall [Unknown]

NARRATIVE: CASE EVENT DATE: 20230101
